FAERS Safety Report 6384137-6 (Version None)
Quarter: 2009Q4

REPORT INFORMATION
  Report Type: 
  Country: None (occurrence: None)
  Receive Date: 20091001
  Receipt Date: 20090924
  Transmission Date: 20100525
  Serious: Yes (Life-Threatening, Hospitalization)
  Sender: FDA-Public Use
  Company Number: KR-ROCHE-652858

PATIENT
  Sex: Male
  Weight: 52.2 kg

DRUGS (6)
  1. CAPECITABINE [Suspect]
     Indication: METASTATIC GASTRIC CANCER
     Dosage: DAY 1-14 OF 21 DAYS
     Route: 048
     Dates: start: 20090430
  2. CAPECITABINE [Suspect]
     Dosage: FREQUENCY: Q3W
     Route: 048
     Dates: start: 20090720, end: 20090803
  3. SUTENT [Suspect]
     Indication: METASTATIC GASTRIC CANCER
     Dosage: 2/1 SCHEDULE; (2 WEEKS ON, 1 WEEK OFF)
     Route: 048
     Dates: start: 20090430
  4. SUTENT [Suspect]
     Route: 048
     Dates: start: 20090720, end: 20090802
  5. ELOXATIN [Suspect]
     Indication: METASTATIC GASTRIC CANCER
     Dosage: TEMPORARILY INTERRUPTED.
     Route: 041
     Dates: start: 20090430
  6. ELOXATIN [Suspect]
     Route: 041
     Dates: start: 20090720, end: 20090720

REACTIONS (1)
  - CEREBRAL HAEMORRHAGE [None]
